FAERS Safety Report 18709758 (Version 1)
Quarter: 2021Q1

REPORT INFORMATION
  Report Type: Spontaneous
  Country: US (occurrence: US)
  Receive Date: 20210106
  Receipt Date: 20210106
  Transmission Date: 20210419
  Serious: No
  Sender: FDA-Public Use
  Company Number: US-AERIE-2020-001904

PATIENT

DRUGS (6)
  1. XALATAN [Concomitant]
     Active Substance: LATANOPROST
     Indication: GLAUCOMA
     Dosage: UNK, PRN
     Route: 047
     Dates: start: 2008
  2. MELOXICAM. [Concomitant]
     Active Substance: MELOXICAM
     Indication: PRODUCT USED FOR UNKNOWN INDICATION
     Dosage: UNK
     Route: 048
  3. NIACIN. [Concomitant]
     Active Substance: NIACIN
     Indication: BLOOD CHOLESTEROL INCREASED
     Dosage: UNK
     Route: 048
  4. ROCKLATAN [Suspect]
     Active Substance: LATANOPROST\NETARSUDIL MESYLATE
     Indication: PRODUCT USED FOR UNKNOWN INDICATION
     Dosage: UNK
     Route: 047
  5. CELEBREX [Concomitant]
     Active Substance: CELECOXIB
     Indication: PRODUCT USED FOR UNKNOWN INDICATION
     Dosage: UNK
     Route: 048
     Dates: start: 2012
  6. DORZOLAMIDE HYDROCHLORIDE. [Concomitant]
     Active Substance: DORZOLAMIDE HYDROCHLORIDE
     Indication: GLAUCOMA
     Dosage: UNK, BID
     Route: 047

REACTIONS (1)
  - Conjunctival hyperaemia [Unknown]

NARRATIVE: CASE EVENT DATE: 2020
